FAERS Safety Report 8298456 (Version 2)
Quarter: 2012Q4

REPORT INFORMATION
  Report Type: 
  Country: US (occurrence: US)
  Receive Date: 20111219
  Receipt Date: 20121026
  Transmission Date: 20130627
  Serious: No
  Sender: FDA-Public Use
  Company Number: US-ASTRAZENECA-2011SE39396

PATIENT
  Age: 74 Year
  Sex: Female
  Weight: 72.1 kg

DRUGS (5)
  1. CRESTOR [Suspect]
     Indication: BLOOD CHOLESTEROL
     Dosage: EVERYDAY
     Route: 048
  2. CRESTOR [Suspect]
     Indication: BLOOD CHOLESTEROL
     Route: 048
  3. CRESTOR [Suspect]
     Indication: BLOOD CHOLESTEROL
     Dosage: 5 MG ONCE EVERY WEDNESDAY
     Route: 048
  4. BLOOD PRESSURE MEDICATION [Concomitant]
     Indication: BLOOD PRESSURE
  5. HALF OF THE THYROID PILL [Concomitant]
     Indication: THYROID DISORDER

REACTIONS (3)
  - Myalgia [Unknown]
  - Drug prescribing error [Not Recovered/Not Resolved]
  - Off label use [Unknown]
